FAERS Safety Report 15204590 (Version 1)
Quarter: 2018Q3

REPORT INFORMATION
  Report Type: Spontaneous
  Country: IT (occurrence: IT)
  Receive Date: 20180726
  Receipt Date: 20180726
  Transmission Date: 20181010
  Serious: Yes (Hospitalization, Other)
  Sender: FDA-Public Use
  Company Number: PHHY2018IT052669

PATIENT
  Age: 42 Year
  Sex: Female

DRUGS (12)
  1. NYSTATIN. [Concomitant]
     Active Substance: NYSTATIN
     Indication: PRODUCT USED FOR UNKNOWN INDICATION
     Dosage: UNK
     Route: 065
  2. VALGANCICLOVIR. [Concomitant]
     Active Substance: VALGANCICLOVIR
     Indication: PRODUCT USED FOR UNKNOWN INDICATION
     Dosage: UNK
     Route: 065
  3. AMBISOME [Suspect]
     Active Substance: AMPHOTERICIN B
     Indication: ANTIFUNGAL TREATMENT
     Dosage: 1 DF, UNK
     Route: 042
  4. POSACONAZOLE [Suspect]
     Active Substance: POSACONAZOLE
     Indication: ANTIFUNGAL TREATMENT
  5. MYCOPHENOLATE MOFETIL. [Suspect]
     Active Substance: MYCOPHENOLATE MOFETIL
     Indication: IMMUNOSUPPRESSANT DRUG THERAPY
     Dosage: 500 MG, BID (1000MG)
     Route: 065
  6. TACROLIMUS. [Suspect]
     Active Substance: TACROLIMUS
     Indication: RENAL AND LIVER TRANSPLANT
     Dosage: UNK, TARGET TROUGH LEVEL OF 4 TO 7 NG/ML
     Route: 048
  7. TACROLIMUS. [Suspect]
     Active Substance: TACROLIMUS
     Indication: IMMUNOSUPPRESSANT DRUG THERAPY
  8. POSACONAZOLE [Suspect]
     Active Substance: POSACONAZOLE
     Indication: MUCORMYCOSIS
     Dosage: 300 MG, UNK (100 MG, TID, TARGET TROUGH 1?2 UG/ML)
     Route: 048
  9. METHYLPREDNISOLONE. [Concomitant]
     Active Substance: METHYLPREDNISOLONE
     Indication: PRODUCT USED FOR UNKNOWN INDICATION
     Dosage: UNK
     Route: 065
  10. MYCOPHENOLATE MOFETIL. [Suspect]
     Active Substance: MYCOPHENOLATE MOFETIL
     Indication: RENAL AND LIVER TRANSPLANT
     Dosage: 250 MG, BID (500 MG)
     Route: 065
  11. AMBISOME [Suspect]
     Active Substance: AMPHOTERICIN B
     Indication: MUCORMYCOSIS
     Dosage: UNK
     Route: 065
  12. AMBISOME [Suspect]
     Active Substance: AMPHOTERICIN B
     Dosage: 5 MG/KG, UNK
     Route: 042

REACTIONS (12)
  - Upper gastrointestinal haemorrhage [Unknown]
  - Renal tubular necrosis [Recovered/Resolved]
  - Cytomegalovirus infection [Unknown]
  - Internal haemorrhage [Unknown]
  - Shock haemorrhagic [Unknown]
  - Decreased appetite [Recovered/Resolved]
  - Renal impairment [Recovered/Resolved]
  - Chronic gastritis [Unknown]
  - BK virus infection [Recovered/Resolved]
  - Transplant rejection [Recovered/Resolved]
  - Mucormycosis [Recovered/Resolved]
  - Vomiting [Recovered/Resolved]
